FAERS Safety Report 4954948-X (Version None)
Quarter: 2006Q1

REPORT INFORMATION
  Report Type: 
  Country: None (occurrence: None)
  Receive Date: 20060322
  Receipt Date: 20060308
  Transmission Date: 20060701
  Serious: Yes (Hospitalization, Other)
  Sender: FDA-Public Use
  Company Number: 2006034500

PATIENT
  Age: 76 Year
  Sex: Female
  Weight: 68.0396 kg

DRUGS (6)
  1. CELEBREX [Suspect]
     Indication: ARTHRITIS
     Dosage: 200 MG (200 MG, 1 IN 1 D),
  2. BEXTRA [Suspect]
     Indication: ILL-DEFINED DISORDER
  3. ALL OTHER THERAPEUTIC PRODUCTS (ALL OTHER THERAPEUTIC PRODUCTS) [Suspect]
     Indication: SURGERY
     Dates: start: 20000101, end: 20000101
  4. NEXIUM [Concomitant]
  5. DETROL LA [Concomitant]
  6. LIPITOR [Concomitant]

REACTIONS (13)
  - ANAESTHETIC COMPLICATION [None]
  - BACTERIAL INFECTION [None]
  - BLOOD SODIUM DECREASED [None]
  - COMA [None]
  - DEHYDRATION [None]
  - DERMATITIS ALLERGIC [None]
  - DIZZINESS [None]
  - EATING DISORDER [None]
  - ERYTHEMA [None]
  - MONOPLEGIA [None]
  - PROCEDURAL COMPLICATION [None]
  - SHOULDER ARTHROPLASTY [None]
  - VERTIGO [None]
